FAERS Safety Report 24370422 (Version 6)
Quarter: 2025Q3

REPORT INFORMATION
  Report Type: Report from Study
  Country: AR (occurrence: AR)
  Receive Date: 20240927
  Receipt Date: 20250703
  Transmission Date: 20251020
  Serious: No
  Sender: JOHNSON AND JOHNSON
  Company Number: AR-JNJFOC-20240927511

PATIENT
  Age: 54 Year
  Weight: 105 kg

DRUGS (2)
  1. GUSELKUMAB [Suspect]
     Active Substance: GUSELKUMAB
     Indication: Psoriasis
     Route: 058
     Dates: start: 20210618
  2. GUSELKUMAB [Suspect]
     Active Substance: GUSELKUMAB
     Indication: Psoriasis

REACTIONS (3)
  - Product dose omission issue [Unknown]
  - Needle issue [Unknown]
  - Accidental exposure to product [Unknown]

NARRATIVE: CASE EVENT DATE: 20240905
